FAERS Safety Report 9409616 (Version 1)
Quarter: 2013Q3

REPORT INFORMATION
  Report Type: Spontaneous
  Country: US (occurrence: None)
  Receive Date: 20130716
  Receipt Date: 20130716
  Transmission Date: 20140515
  Serious: Yes (Other)
  Sender: FDA-Public Use
  Company Number: ADE13-017

PATIENT
  Age: 63 Year
  Sex: Male
  Weight: 137.5 kg

DRUGS (3)
  1. HEPARIN SODIUM [Suspect]
     Indication: FEMORAL ARTERY ANEURYSM
     Dosage: 18000 UNITS TOTAL DOSE
     Route: 042
     Dates: start: 20130627
  2. HEPARIN SODIUM [Suspect]
     Indication: ANEURYSM REPAIR
     Dosage: 18000 UNITS TOTAL DOSE
     Route: 042
     Dates: start: 20130627
  3. HEPARIN SODIUM [Suspect]
     Dosage: 5000 UNITS TOTAL DOSE
     Route: 042
     Dates: start: 20130627

REACTIONS (2)
  - Drug effect decreased [None]
  - Product quality issue [None]
